FAERS Safety Report 17767982 (Version 1)
Quarter: 2020Q2

REPORT INFORMATION
  Report Type: Spontaneous
  Country: JP (occurrence: JP)
  Receive Date: 20200511
  Receipt Date: 20200511
  Transmission Date: 20200714
  Serious: Yes (Life-Threatening)
  Sender: FDA-Public Use
  Company Number: JP-FRESENIUS KABI-FK202004538

PATIENT
  Age: 75 Year
  Sex: Female

DRUGS (1)
  1. GLUCAGON (MANUFACTURER UNKNOWN) [Suspect]
     Active Substance: GLUCAGON
     Indication: DRUG THERAPY
     Route: 065

REACTIONS (3)
  - Hypertensive crisis [Recovered/Resolved]
  - Shock [Recovered/Resolved]
  - Multiple organ dysfunction syndrome [Recovered/Resolved]
